FAERS Safety Report 12089679 (Version 9)
Quarter: 2021Q3

REPORT INFORMATION
  Report Type: Spontaneous
  Country: US (occurrence: US)
  Receive Date: 20160218
  Receipt Date: 20210715
  Transmission Date: 20211014
  Serious: Yes (Other)
  Sender: FDA-Public Use
  Company Number: US-PFIZER INC-2016075781

PATIENT
  Age: 52 Year
  Sex: Female
  Weight: 115 kg

DRUGS (3)
  1. LYRICA [Suspect]
     Active Substance: PREGABALIN
     Indication: FIBROMYALGIA
     Dosage: 75 MG
  2. LYRICA [Suspect]
     Active Substance: PREGABALIN
     Indication: NEUROPATHY PERIPHERAL
     Dosage: 300 MG, DAILY (75 MG IN THE MORNING, 75 MG IN THE AFTERNOON, 150 MG AT 7 PM)
     Route: 048
  3. LYRICA [Suspect]
     Active Substance: PREGABALIN
     Indication: PAIN
     Dosage: 300 MG, DAILY (75 MG AT 7 AM AND 1 PM AND 150 MG ORALLY 9 PM)
     Route: 048

REACTIONS (3)
  - Drug ineffective [Unknown]
  - Laryngitis [Recovered/Resolved]
  - Mental impairment [Unknown]

NARRATIVE: CASE EVENT DATE: 20190311
